FAERS Safety Report 12701641 (Version 1)
Quarter: 2016Q3

REPORT INFORMATION
  Report Type: Spontaneous
  Country: US (occurrence: None)
  Receive Date: 20160830
  Receipt Date: 20160830
  Transmission Date: 20161109
  Serious: Yes (Hospitalization)
  Sender: FDA-Public Use
  Company Number: None

PATIENT
  Age: 62 Year
  Sex: Male
  Weight: 66.68 kg

DRUGS (1)
  1. SEVOFLURANE. [Suspect]
     Active Substance: SEVOFLURANE
     Indication: OESOPHAGOGASTRIC FUNDOPLASTY
     Route: 055

REACTIONS (4)
  - Mental status changes [None]
  - Anaesthetic complication [None]
  - Agitation [None]
  - Condition aggravated [None]

NARRATIVE: CASE EVENT DATE: 20150922
